FAERS Safety Report 17389583 (Version 1)
Quarter: 2020Q1

REPORT INFORMATION
  Report Type: Spontaneous
  Country: US (occurrence: US)
  Receive Date: 20200207
  Receipt Date: 20200207
  Transmission Date: 20200409
  Serious: Yes (Other)
  Sender: FDA-Public Use
  Company Number: US-TEVA-2020-US-1178878

PATIENT
  Age: 34 Year
  Sex: Male

DRUGS (7)
  1. FLUTICASONE. [Suspect]
     Active Substance: FLUTICASONE
     Indication: EOSINOPHILIC OESOPHAGITIS
     Dosage: 400 MICROGRAM DAILY;
     Route: 048
  2. RPC4046 [Concomitant]
     Indication: EOSINOPHILIC OESOPHAGITIS
  3. METHOTREXATE. [Suspect]
     Active Substance: METHOTREXATE
     Indication: RHEUMATOID ARTHRITIS
     Dosage: LOW-DOSE
     Route: 065
  4. AZATHIOPRINE. [Suspect]
     Active Substance: AZATHIOPRINE
     Indication: EOSINOPHILIC OESOPHAGITIS
     Route: 065
  5. TACROLIMUS. [Suspect]
     Active Substance: TACROLIMUS
     Indication: EOSINOPHILIC OESOPHAGITIS
     Dosage: 1 MILLIGRAM DAILY;
     Route: 065
  6. INFLIXIMAB [Suspect]
     Active Substance: INFLIXIMAB
     Indication: RHEUMATOID ARTHRITIS
     Dosage: ADMINISTERED EVERY 6 WEEKS, 5 MG/KG
     Route: 065
  7. CANAKINUMAB. [Concomitant]
     Active Substance: CANAKINUMAB
     Indication: EOSINOPHILIC OESOPHAGITIS
     Dosage: ADMINISTERED EVERY 8 WEEKS
     Route: 065

REACTIONS (5)
  - Diarrhoea [Unknown]
  - Skin reaction [Unknown]
  - Drug hypersensitivity [Unknown]
  - Drug ineffective [Unknown]
  - Hepatic enzyme increased [Unknown]
